FAERS Safety Report 14156579 (Version 4)
Quarter: 2020Q3

REPORT INFORMATION
  Report Type: Report from Study
  Country: MX (occurrence: MX)
  Receive Date: 20171103
  Receipt Date: 20200811
  Transmission Date: 20201102
  Serious: Yes (Hospitalization, Other)
  Sender: FDA-Public Use
  Company Number: PHHY2017MX161021

PATIENT
  Sex: Female
  Weight: 71 kg

DRUGS (7)
  1. EUGLUCON [Concomitant]
     Active Substance: GLYBURIDE
     Indication: PRODUCT USED FOR UNKNOWN INDICATION
     Route: 065
  2. INSULIN [Concomitant]
     Active Substance: INSULIN NOS
     Indication: PRODUCT USED FOR UNKNOWN INDICATION
     Route: 065
  3. FORXIGA [Concomitant]
     Active Substance: DAPAGLIFLOZIN
     Indication: PRODUCT USED FOR UNKNOWN INDICATION
     Dosage: 10 MG, UNK
     Route: 065
  4. COSENTYX [Suspect]
     Active Substance: SECUKINUMAB
     Indication: PSORIATIC ARTHROPATHY
     Dosage: 2 DF (150MG/ML), QMO
     Route: 058
     Dates: start: 2017
  5. COSENTYX [Suspect]
     Active Substance: SECUKINUMAB
     Indication: PSORIASIS
     Dosage: 150 MG, QMO
     Route: 058
     Dates: start: 201705
  6. GALVUS MET [Suspect]
     Active Substance: METFORMIN HYDROCHLORIDE\VILDAGLIPTIN
     Indication: PRODUCT USED FOR UNKNOWN INDICATION
     Route: 065
  7. CALCORT [Concomitant]
     Active Substance: DEFLAZACORT
     Indication: PRODUCT USED FOR UNKNOWN INDICATION
     Dosage: 30 MG, UNK
     Route: 065

REACTIONS (20)
  - Haematemesis [Unknown]
  - Skin plaque [Unknown]
  - Blister [Unknown]
  - Pigmentation disorder [Recovered/Resolved with Sequelae]
  - Bone disorder [Not Recovered/Not Resolved]
  - Psoriasis [Unknown]
  - Diabetes mellitus [Unknown]
  - Renal injury [Unknown]
  - Depression [Not Recovered/Not Resolved]
  - Immune system disorder [Unknown]
  - Rash [Unknown]
  - Pruritus [Unknown]
  - Renal disorder [Unknown]
  - Liver injury [Unknown]
  - Blood disorder [Unknown]
  - Influenza [Unknown]
  - Arthritis [Not Recovered/Not Resolved]
  - Discomfort [Unknown]
  - Bone pain [Not Recovered/Not Resolved]
  - Drug ineffective [Unknown]
